FAERS Safety Report 21241347 (Version 3)
Quarter: 2022Q4

REPORT INFORMATION
  Report Type: Other
  Country: LB (occurrence: LB)
  Receive Date: 20220823
  Receipt Date: 20221007
  Transmission Date: 20230113
  Serious: Yes (Hospitalization, Other)
  Sender: FDA-Public Use
  Company Number: LB-002147023-NVSC2022LB162886

PATIENT
  Age: 64 Year
  Sex: Male
  Weight: 69 kg

DRUGS (3)
  1. LUCENTIS [Suspect]
     Active Substance: RANIBIZUMAB
     Indication: Diabetic retinal oedema
     Dosage: 10 MG/ML, LEFT EYE, (STOP DATE: 2.5 MONTHS AGO 3 TO 4 DAYS BEFORE THE SURGERY)
     Route: 050
     Dates: start: 20220218, end: 20220218
  2. EYLEA [Concomitant]
     Active Substance: AFLIBERCEPT
     Indication: Product used for unknown indication
     Dosage: 40 MILLIGRAM PER MILLILITRE (LEFT EYE)
     Dates: start: 202205
  3. EYLEA [Concomitant]
     Active Substance: AFLIBERCEPT
     Dosage: UNK
     Dates: start: 202206

REACTIONS (6)
  - Asthenopia [Not Recovered/Not Resolved]
  - Drug ineffective [Unknown]
  - Eye haemorrhage [Not Recovered/Not Resolved]
  - Visual impairment [Not Recovered/Not Resolved]
  - Vision blurred [Unknown]
  - Inappropriate schedule of product administration [Unknown]

NARRATIVE: CASE EVENT DATE: 20220318
